FAERS Safety Report 25504226 (Version 2)
Quarter: 2025Q3

REPORT INFORMATION
  Report Type: Report from Study
  Country: US (occurrence: US)
  Receive Date: 20250702
  Receipt Date: 20250710
  Transmission Date: 20251021
  Serious: No
  Sender: SUNOVION
  Company Number: US-SUMITOMO PHARMA SWITZERLAND GMBH-2025SPA007790

PATIENT

DRUGS (22)
  1. ORGOVYX [Suspect]
     Active Substance: RELUGOLIX
     Indication: Prostate cancer
     Route: 048
     Dates: start: 20250523
  2. 5-htp [Concomitant]
     Route: 048
  3. ACIDOPHILUS [Concomitant]
     Active Substance: LACTOBACILLUS ACIDOPHILUS
     Route: 065
  4. .BETA.-SITOSTEROL [Concomitant]
     Active Substance: .BETA.-SITOSTEROL
     Route: 048
  5. COENZYME Q10 [Concomitant]
     Active Substance: DIETARY SUPPLEMENT\UBIDECARENONE
     Route: 048
  6. L Lysine [Concomitant]
     Route: 065
  7. LUTEIN [Concomitant]
     Active Substance: LUTEIN
     Route: 048
  8. MELATONIN [Concomitant]
     Active Substance: MELATONIN
     Route: 048
  9. HERBALS\SAW PALMETTO [Concomitant]
     Active Substance: HERBALS\SAW PALMETTO
     Route: 065
  10. VITAMIN C [Concomitant]
     Active Substance: ASCORBIC ACID
     Route: 065
  11. ZINC GLUCONATE [Concomitant]
     Active Substance: ZINC GLUCONATE
     Route: 065
  12. D3 +K2 [Concomitant]
     Route: 048
  13. VITAMINS [Concomitant]
     Active Substance: VITAMINS
     Route: 065
  14. ASPIRIN [Concomitant]
     Active Substance: ASPIRIN
     Route: 065
  15. FLONASE [Concomitant]
     Active Substance: FLUTICASONE PROPIONATE
     Route: 065
  16. LEVOTHYROXINE [Concomitant]
     Active Substance: LEVOTHYROXINE
     Route: 065
  17. LYCOPENE [Concomitant]
     Active Substance: LYCOPENE
     Route: 065
  18. NEBIVOLOL [Concomitant]
     Active Substance: NEBIVOLOL
     Route: 065
  19. ROSUVASTATIN [Concomitant]
     Active Substance: ROSUVASTATIN
     Route: 065
  20. MAGNESIUM OXIDE [Concomitant]
     Active Substance: MAGNESIUM OXIDE
     Route: 065
  21. Stinging nettle root [Concomitant]
     Route: 065
  22. ZYRTEC [Concomitant]
     Active Substance: CETIRIZINE HYDROCHLORIDE
     Route: 065

REACTIONS (3)
  - Hot flush [Unknown]
  - Fatigue [Unknown]
  - Incorrect dose administered [Unknown]
